FAERS Safety Report 24183570 (Version 2)
Quarter: 2024Q3

REPORT INFORMATION
  Report Type: Spontaneous
  Country: TW (occurrence: TW)
  Receive Date: 20240807
  Receipt Date: 20240809
  Transmission Date: 20241017
  Serious: Yes (Hospitalization, Other)
  Sender: BAYER
  Company Number: TW-BAYER-2024A113539

PATIENT
  Age: 63 Year
  Sex: Male

DRUGS (1)
  1. XOFIGO [Suspect]
     Active Substance: RADIUM RA-223 DICHLORIDE
     Indication: Hormone-refractory prostate cancer
     Dosage: 3 INJECTION
     Dates: start: 20240510, end: 20240705

REACTIONS (3)
  - Dysuria [Recovering/Resolving]
  - Renal impairment [None]
  - Gene mutation [None]
